FAERS Safety Report 9688370 (Version 1)
Quarter: 2013Q4

REPORT INFORMATION
  Report Type: Spontaneous
  Country: FR (occurrence: FR)
  Receive Date: 20131114
  Receipt Date: 20131114
  Transmission Date: 20140711
  Serious: Yes (Disabling)
  Sender: FDA-Public Use
  Company Number: FR-SA-2013SA114068

PATIENT
  Age: 62 Year
  Sex: Female

DRUGS (1)
  1. APROVEL [Suspect]
     Indication: HYPERTENSION
     Route: 048
     Dates: start: 201304

REACTIONS (1)
  - Tendonitis [Recovering/Resolving]
